FAERS Safety Report 6021585-8 (Version None)
Quarter: 2008Q4

REPORT INFORMATION
  Report Type: 
  Country: None (occurrence: None)
  Receive Date: 20081229
  Receipt Date: 20081218
  Transmission Date: 20090506
  Serious: Yes (Other)
  Sender: FDA-Public Use
  Company Number: PHBS2008JP05759

PATIENT
  Age: 7 Year
  Sex: Male

DRUGS (2)
  1. OCTREOTIDE ACETATE [Suspect]
     Indication: PANCREATITIS
     Dosage: 20 UG/KG PER DAY
     Route: 042
  2. ANTINEOPLASTIC AGENTS [Concomitant]
     Indication: ACUTE LYMPHOCYTIC LEUKAEMIA

REACTIONS (7)
  - ABDOMINAL PAIN [None]
  - BLOOD AMYLASE INCREASED [None]
  - C-REACTIVE PROTEIN INCREASED [None]
  - HYPOVOLAEMIA [None]
  - OLIGURIA [None]
  - PANCREATIC PSEUDOCYST [None]
  - PANCREATITIS ACUTE [None]
